FAERS Safety Report 23362986 (Version 1)
Quarter: 2024Q1

REPORT INFORMATION
  Report Type: Spontaneous
  Country: CA (occurrence: CA)
  Receive Date: 20240103
  Receipt Date: 20240103
  Transmission Date: 20240410
  Serious: Yes (Other)
  Sender: FDA-Public Use
  Company Number: CA-PFIZER INC-202300453430

PATIENT
  Age: 33 Year
  Sex: Male

DRUGS (7)
  1. METHOTREXATE SODIUM [Suspect]
     Active Substance: METHOTREXATE SODIUM
     Dosage: 25 MG
     Route: 058
  2. ERELZI [Suspect]
     Active Substance: ETANERCEPT-SZZS
     Dosage: UNK
     Route: 065
  3. PREDNISONE [Suspect]
     Active Substance: PREDNISONE
     Dosage: UNK, 1 EVERY 1 DAYS
     Route: 048
  4. RAMIPRIL [Suspect]
     Active Substance: RAMIPRIL
     Dosage: UNK, 2 EVERY 1 DAYS
     Route: 048
  5. CARVEDILOL [Concomitant]
     Active Substance: CARVEDILOL
     Dosage: UNK, 2 EVERY 1 DAYS
     Route: 048
  6. KEVZARA [Concomitant]
     Active Substance: SARILUMAB
     Dosage: UNK
     Route: 065
  7. TOFACITINIB CITRATE [Concomitant]
     Active Substance: TOFACITINIB CITRATE
     Dosage: UNK
     Route: 065

REACTIONS (5)
  - C-reactive protein increased [Unknown]
  - Osteoporosis [Unknown]
  - Pain [Unknown]
  - Quality of life decreased [Unknown]
  - Suicidal ideation [Unknown]
